FAERS Safety Report 9041685 (Version 1)
Quarter: 2013Q1

REPORT INFORMATION
  Report Type: Report from Study
  Country: US (occurrence: US)
  Receive Date: 20130129
  Receipt Date: 20130129
  Transmission Date: 20140127
  Serious: No
  Sender: FDA-Public Use
  Company Number: US-ABBOTT-12P-163-0901548-00

PATIENT
  Age: 59 Year
  Sex: Female

DRUGS (13)
  1. HUMIRA 40 MG/0.8 ML PEN [Suspect]
     Indication: RHEUMATOID ARTHRITIS
  2. TRAMADOL [Concomitant]
     Indication: PAIN
  3. MOBIC [Concomitant]
     Indication: PAIN
     Dosage: AT BEDTIME
  4. VOLTAREN GEL 1% [Concomitant]
     Indication: PAIN
     Route: 061
  5. LOSARTAN [Concomitant]
     Indication: BLOOD PRESSURE
     Dosage: 10 MG DAILY
  6. LOVAZA [Concomitant]
     Indication: INFLAMMATION
  7. SYNTHROID [Concomitant]
     Indication: DEPRESSION
     Dosage: 0.05MG DAILY
  8. SYNTHROID [Concomitant]
     Indication: PAIN
  9. CRESTOR [Concomitant]
     Indication: BLOOD CHOLESTEROL INCREASED
     Dosage: 10MG DAILY
  10. BYSTOLIC [Concomitant]
     Indication: TACHYCARDIA
     Dosage: 5MG DAILY
  11. BYSTOLIC [Concomitant]
     Indication: HEART RATE INCREASED
  12. OMEPRAZOLE [Concomitant]
     Indication: DYSPEPSIA
     Dosage: 40MG DAILY
  13. LYRICA [Concomitant]
     Indication: FIBROMYALGIA
     Dosage: AT BEDTIME

REACTIONS (2)
  - Injection site pain [Recovered/Resolved]
  - Stress fracture [Not Recovered/Not Resolved]
